FAERS Safety Report 4837079-9 (Version None)
Quarter: 2005Q4

REPORT INFORMATION
  Report Type: 
  Country: None (occurrence: None)
  Receive Date: 20051122
  Receipt Date: 20051108
  Transmission Date: 20060501
  Serious: Yes (Death)
  Sender: FDA-Public Use
  Company Number: 2005BI014351

PATIENT
  Age: 78 Year
  Sex: Female

DRUGS (5)
  1. AVONEX [Suspect]
     Indication: MULTIPLE SCLEROSIS
     Dosage: IM
     Route: 030
  2. INSULIN [Concomitant]
  3. SYNTHROID [Concomitant]
  4. PEPCID [Concomitant]
  5. PLAVIX [Concomitant]

REACTIONS (2)
  - MULTIPLE SCLEROSIS [None]
  - PNEUMONIA [None]
